FAERS Safety Report 9364851 (Version 3)
Quarter: 2013Q3

REPORT INFORMATION
  Report Type: Spontaneous
  Country: US (occurrence: US)
  Receive Date: 20130624
  Receipt Date: 20130827
  Transmission Date: 20140515
  Serious: Yes (Hospitalization)
  Sender: FDA-Public Use
  Company Number: US-ALLERGAN-1308700US

PATIENT
  Sex: Male

DRUGS (1)
  1. BOTOX [Suspect]
     Indication: MIGRAINE
     Dosage: 142.5 UNITS, SINGLE
     Dates: start: 20130606, end: 20130606

REACTIONS (5)
  - Pharyngitis [Unknown]
  - Laryngitis [Unknown]
  - Dysphonia [Unknown]
  - Respiratory failure [Unknown]
  - Myasthenia gravis [Unknown]
